FAERS Safety Report 7334254-9 (Version None)
Quarter: 2011Q1

REPORT INFORMATION
  Report Type: 
  Country: None (occurrence: None)
  Receive Date: 20110307
  Receipt Date: 20110304
  Transmission Date: 20110831
  Serious: Yes (Other)
  Sender: FDA-Public Use
  Company Number: US-PFIZER INC-2011048383

PATIENT
  Sex: Female
  Weight: 57.5 kg

DRUGS (3)
  1. XANAX [Suspect]
     Indication: VOCAL CORD PARALYSIS
     Dosage: 0.5 MG, 1X/DAY
     Route: 048
  2. VALIUM [Suspect]
     Indication: VOCAL CORD PARALYSIS
     Dosage: UNK
     Route: 048
     Dates: start: 20090101, end: 20090101
  3. LEVAQUIN [Concomitant]
     Indication: AUTOIMMUNE THYROIDITIS
     Dosage: UNK
     Route: 048

REACTIONS (5)
  - DYSPNOEA [None]
  - DRUG INEFFECTIVE [None]
  - THYROID CANCER [None]
  - VOMITING [None]
  - ANXIETY [None]
